FAERS Safety Report 25757440 (Version 2)
Quarter: 2025Q4

REPORT INFORMATION
  Report Type: Report from Study
  Country: US (occurrence: US)
  Receive Date: 20250903
  Receipt Date: 20251024
  Transmission Date: 20260118
  Serious: No
  Sender: SANDOZ
  Company Number: US-SANDOZ-SDZ2025US061583

PATIENT
  Sex: Female

DRUGS (4)
  1. OMNITROPE [Suspect]
     Active Substance: SOMATROPIN
     Indication: Hypopituitarism
     Dosage: 1.4 ML, QD 5 MG/ML POWDER AND SOLVENT FOR SOLUTION FOR INJECTION
     Route: 058
  2. OMNITROPE [Suspect]
     Active Substance: SOMATROPIN
     Indication: Hypopituitarism
     Dosage: 1.4 ML, QD 5 MG/ML POWDER AND SOLVENT FOR SOLUTION FOR INJECTION
     Route: 058
  3. OMNITROPE [Suspect]
     Active Substance: SOMATROPIN
     Dosage: 16 ML QD
     Route: 058
  4. OMNITROPE [Suspect]
     Active Substance: SOMATROPIN
     Dosage: 16 ML QD
     Route: 058

REACTIONS (2)
  - Circumstance or information capable of leading to medication error [Unknown]
  - Needle issue [Unknown]
